FAERS Safety Report 8354243 (Version 2)
Quarter: 2012Q4

REPORT INFORMATION
  Report Type: 
  Country: US (occurrence: US)
  Receive Date: 20120125
  Receipt Date: 20121112
  Transmission Date: 20130627
  Serious: Yes (Other)
  Sender: FDA-Public Use
  Company Number: PHEH2011US011109

PATIENT
  Age: 56 Year
  Sex: Female

DRUGS (14)
  1. GILENYA [Suspect]
     Dosage: 0.5 mg, QD
     Route: 048
     Dates: start: 201105
  2. SINGULAIR [Concomitant]
     Dosage: 10 mg, at night
  3. CETIRIZINE HYDROCHLORIDE [Concomitant]
     Indication: DEPRESSION
     Dosage: 10 mg, at night
  4. BUPROPION [Concomitant]
     Dosage: 150 mg, BID
  5. TRAZODONE [Concomitant]
     Dosage: 50 mg, 2xnight
  6. NAMENDA [Concomitant]
     Dosage: 10 mg, BID
  7. GABAPENTIN [Concomitant]
     Dosage: 300 mg, QID
  8. FLUTICASONE PROPIONATE [Concomitant]
     Dosage: 50 mcp, 2 sprays 1xdaily
  9. LEVOTHYROXINE [Concomitant]
     Indication: THYROID DISORDER
     Dosage: 50 UKN, QD
  10. PROAIR (FLUTICASONE PROPIONATE) [Concomitant]
     Dosage: 1 puff, 4-6 times PRN
  11. HYDROCODONE W/APAP [Concomitant]
     Indication: PAIN
     Dosage: 10/325 mg, PRN
  12. ZOLPIDEM [Concomitant]
     Indication: SLEEP DISORDER
     Dosage: 10 mg, 1xnight
  13. EVAMIST [Concomitant]
     Dosage: 1.5 mg, 3 sprays
  14. DETHANECHOL [Concomitant]
     Dosage: 10 mg, TID

REACTIONS (12)
  - Abasia [Unknown]
  - Dysgraphia [Unknown]
  - Nausea [Recovered/Resolved]
  - Fall [Unknown]
  - Depression [Unknown]
  - Weight decreased [Unknown]
  - Vomiting in pregnancy [Unknown]
  - Drug hypersensitivity [Unknown]
  - Eating disorder [Unknown]
  - Stress [Unknown]
  - Malaise [Unknown]
  - Headache [Unknown]
